FAERS Safety Report 24533899 (Version 1)
Quarter: 2024Q4

REPORT INFORMATION
  Report Type: Spontaneous
  Country: US (occurrence: None)
  Receive Date: 20241021
  Receipt Date: 20241021
  Transmission Date: 20250115
  Serious: No
  Sender: Public
  Company Number: None

PATIENT
  Age: 31 Year
  Sex: Female
  Weight: 51.75 kg

DRUGS (4)
  1. MONISTAT 7 [Suspect]
     Active Substance: MICONAZOLE NITRATE
     Indication: Fungal infection
     Dosage: OTHER QUANTITY : 1 APPLICATION;?FREQUENCY : AT BEDTIME;?
     Route: 067
     Dates: start: 20241021, end: 20241021
  2. SERTRALINE [Concomitant]
  3. LEVOTHYROXINE [Concomitant]
  4. Prenatal multivitamin [Concomitant]

REACTIONS (2)
  - Application site pruritus [None]
  - Application site pain [None]

NARRATIVE: CASE EVENT DATE: 20241021
